FAERS Safety Report 23607475 (Version 1)
Quarter: 2024Q1

REPORT INFORMATION
  Report Type: Spontaneous
  Country: US (occurrence: US)
  Receive Date: 20240307
  Receipt Date: 20240307
  Transmission Date: 20240409
  Serious: No
  Sender: FDA-Public Use
  Company Number: US-E2BLSMVVAL-SPO/USA/24/0003550

PATIENT
  Age: 12 Year
  Sex: Female

DRUGS (1)
  1. ACCUTANE [Suspect]
     Active Substance: ISOTRETINOIN
     Indication: Product used for unknown indication
     Dosage: THE PATIENT WAS ORIGINALLY ON DOSAGE 30 MG AND WAS JUST PUT ON 40MG.

REACTIONS (3)
  - Skin injury [Unknown]
  - Erythema [Unknown]
  - Dry skin [Unknown]
